FAERS Safety Report 12384029 (Version 1)
Quarter: 2016Q2

REPORT INFORMATION
  Report Type: Spontaneous
  Country: US (occurrence: US)
  Receive Date: 20160519
  Receipt Date: 20160519
  Transmission Date: 20160815
  Serious: No
  Sender: FDA-Public Use
  Company Number: US-BIOGEN-2016BI00224973

PATIENT
  Sex: Female

DRUGS (1)
  1. TECFIDERA [Suspect]
     Active Substance: DIMETHYL FUMARATE
     Indication: MULTIPLE SCLEROSIS
     Route: 048

REACTIONS (8)
  - Rash [Unknown]
  - Flushing [Unknown]
  - Insomnia [Unknown]
  - Gastric disorder [Unknown]
  - Pruritus [Unknown]
  - Abdominal discomfort [Unknown]
  - Fatigue [Unknown]
  - Multiple sclerosis [Unknown]
